FAERS Safety Report 9729921 (Version 3)
Quarter: 2019Q4

REPORT INFORMATION
  Report Type: Spontaneous
  Country: US (occurrence: US)
  Receive Date: 20131204
  Receipt Date: 20191008
  Transmission Date: 20200122
  Serious: Yes (Other)
  Sender: FDA-Public Use
  Company Number: US-UCBSA-104345

PATIENT
  Sex: Female
  Weight: 81.64 kg

DRUGS (9)
  1. KEPPRA XR [Suspect]
     Active Substance: LEVETIRACETAM
     Indication: SEIZURE
     Dosage: 750 MG
  2. KEPPRA XR [Suspect]
     Active Substance: LEVETIRACETAM
     Dosage: 3000 MG, ONCE DAILY (QD)
     Dates: start: 2013
  3. LAMISIL [Concomitant]
     Active Substance: TERBINAFINE HYDROCHLORIDE
     Indication: ONYCHOMYCOSIS
     Dosage: STARTED IN DECEMBER, ONCE IN A DAY
     Route: 048
  4. ENDOMETHICIN [Concomitant]
     Indication: HEADACHE
     Dosage: 25 MG, 3X/DAY (TID)
     Route: 048
  5. KLONIPINE [Concomitant]
     Active Substance: CLONAZEPAM
     Indication: SEIZURE
     Dosage: .25 MG, 4X/DAY (QID)
     Route: 048
  6. PROZAC [Concomitant]
     Active Substance: FLUOXETINE HYDROCHLORIDE
     Indication: ANXIETY
     Dosage: 40 MG, ONCE DAILY (QD)
     Route: 048
  7. KEPPRA XR [Suspect]
     Active Substance: LEVETIRACETAM
     Dosage: 1500 MG
  8. KEPPRA XR [Suspect]
     Active Substance: LEVETIRACETAM
     Dosage: 2250 MG
  9. PROZAC [Concomitant]
     Active Substance: FLUOXETINE HYDROCHLORIDE
     Indication: DEPRESSION

REACTIONS (3)
  - Aura [Not Recovered/Not Resolved]
  - Eye disorder [Not Recovered/Not Resolved]
  - Seizure [Not Recovered/Not Resolved]

NARRATIVE: CASE EVENT DATE: 2013
